FAERS Safety Report 5954820-2 (Version None)
Quarter: 2008Q4

REPORT INFORMATION
  Report Type: 
  Country: None (occurrence: None)
  Receive Date: 20081117
  Receipt Date: 20081107
  Transmission Date: 20090506
  Serious: Yes (Hospitalization)
  Sender: FDA-Public Use
  Company Number: JP-AMGEN-US317998

PATIENT
  Sex: Male
  Weight: 47 kg

DRUGS (11)
  1. ENBREL [Suspect]
     Indication: RHEUMATOID ARTHRITIS
     Route: 058
     Dates: start: 20050708, end: 20051219
  2. BREDININ [Concomitant]
     Route: 048
     Dates: start: 20050909, end: 20050926
  3. BREDININ [Concomitant]
     Route: 048
     Dates: start: 20050927, end: 20051007
  4. AZULFIDINE EN-TABS [Concomitant]
     Route: 065
     Dates: end: 20051031
  5. INDOMETHACIN [Concomitant]
     Indication: RHEUMATOID ARTHRITIS
     Dosage: UNKNOWN
     Route: 065
  6. OMEPRAL [Concomitant]
     Dosage: UNKNOWN
     Route: 065
  7. GLYCYRON [Concomitant]
     Dosage: UNKNOWN
     Route: 065
  8. DIOVAN [Concomitant]
     Dosage: UNKNOWN
     Route: 065
  9. FERRUM [Concomitant]
     Indication: RHEUMATOID ARTHRITIS
     Dosage: UNKNOWN
     Route: 065
  10. ORCL [Concomitant]
     Route: 048
     Dates: end: 20050908
  11. PREDNISOLONE [Concomitant]
     Indication: RHEUMATOID ARTHRITIS
     Dosage: UNKNOWN
     Route: 065

REACTIONS (2)
  - CONDITION AGGRAVATED [None]
  - HEPATITIS C [None]
